FAERS Safety Report 8633495 (Version 4)
Quarter: 2014Q2

REPORT INFORMATION
  Report Type: Spontaneous
  Country: US (occurrence: US)
  Receive Date: 20120625
  Receipt Date: 20140424
  Transmission Date: 20141212
  Serious: Yes (Death, Life-Threatening, Other)
  Sender: FDA-Public Use
  Company Number: US-JNJFOC-20120610741

PATIENT
  Sex: 0

DRUGS (54)
  1. DOXORUBICIN [Suspect]
     Indication: BURKITT^S LYMPHOMA
     Dosage: ON DAYS 4 AND 5 OF CYCLE 3,5 AND 7
     Route: 042
  2. DOXORUBICIN [Suspect]
     Indication: BURKITT^S LEUKAEMIA
     Dosage: ON DAYS 4 AND 5 OF CYCLE 3,5 AND 7
     Route: 042
  3. CYCLOPHOSPHAMIDE [Suspect]
     Indication: BURKITT^S LYMPHOMA
     Dosage: FOR 5 DAYS IN CYCLE 1
     Route: 042
  4. CYCLOPHOSPHAMIDE [Suspect]
     Indication: BURKITT^S LYMPHOMA
     Dosage: DAYS 1-5 DURING CYCLE 3,5 AND 7
     Route: 042
  5. CYCLOPHOSPHAMIDE [Suspect]
     Indication: BURKITT^S LEUKAEMIA
     Dosage: DAYS 1-5 DURING CYCLE 3,5 AND 7
     Route: 042
  6. CYCLOPHOSPHAMIDE [Suspect]
     Indication: BURKITT^S LEUKAEMIA
     Dosage: FOR 5 DAYS IN CYCLE 1
     Route: 042
  7. PREDNISONE [Suspect]
     Indication: BURKITT^S LYMPHOMA
     Dosage: FOR 7 DAYS IN CYCLE 1
     Route: 048
  8. PREDNISONE [Suspect]
     Indication: BURKITT^S LEUKAEMIA
     Dosage: FOR 7 DAYS IN CYCLE 1
     Route: 048
  9. IFOSFAMIDE [Suspect]
     Indication: BURKITT^S LYMPHOMA
     Dosage: ON DAYS 1-5 IN CYCLE 2,4 AND 6
     Route: 042
  10. IFOSFAMIDE [Suspect]
     Indication: BURKITT^S LEUKAEMIA
     Dosage: ON DAYS 1-5 IN CYCLE 2,4 AND 6
     Route: 042
  11. METHOTREXATE [Suspect]
     Indication: BURKITT^S LYMPHOMA
     Dosage: 1 DAY, CYCLE LENGTH 21 DAYS
     Route: 042
  12. METHOTREXATE [Suspect]
     Indication: BURKITT^S LYMPHOMA
     Dosage: 1 DAY, CYCLE LENGTH 21 DAYS
     Route: 042
  13. METHOTREXATE [Suspect]
     Indication: BURKITT^S LYMPHOMA
     Dosage: 35 G/M2 OVER 23.5 HOURS, 1 DAY, CYCLE LENGTH 21 DAYS
     Route: 042
  14. METHOTREXATE [Suspect]
     Indication: BURKITT^S LYMPHOMA
     Dosage: 35 G/M2 OVER 23.5 HOURS, 1 DAY, CYCLE LENGTH 21 DAYS
     Route: 042
  15. METHOTREXATE [Suspect]
     Indication: BURKITT^S LEUKAEMIA
     Dosage: 35 G/M2 OVER 23.5 HOURS, 1 DAY, CYCLE LENGTH 21 DAYS
     Route: 042
  16. METHOTREXATE [Suspect]
     Indication: BURKITT^S LEUKAEMIA
     Dosage: 35 G/M2 OVER 23.5 HOURS, 1 DAY, CYCLE LENGTH 21 DAYS
     Route: 042
  17. METHOTREXATE [Suspect]
     Indication: BURKITT^S LEUKAEMIA
     Dosage: 1 DAY, CYCLE LENGTH 21 DAYS
     Route: 042
  18. METHOTREXATE [Suspect]
     Indication: BURKITT^S LEUKAEMIA
     Dosage: 1 DAY, CYCLE LENGTH 21 DAYS
     Route: 042
  19. VINCRISTINE [Suspect]
     Indication: BURKITT^S LYMPHOMA
     Dosage: ON DAY 1 OF CYCLE 2,4 AND 6
     Route: 042
  20. VINCRISTINE [Suspect]
     Indication: BURKITT^S LYMPHOMA
     Dosage: ON DAY 1 OF CYCLE 3,5 AND 7
     Route: 042
  21. VINCRISTINE [Suspect]
     Indication: BURKITT^S LEUKAEMIA
     Dosage: ON DAY 1 OF CYCLE 2,4 AND 6
     Route: 042
  22. VINCRISTINE [Suspect]
     Indication: BURKITT^S LEUKAEMIA
     Dosage: ON DAY 1 OF CYCLE 3,5 AND 7
     Route: 042
  23. ARA-C [Suspect]
     Indication: BURKITT^S LYMPHOMA
     Dosage: ON DAYS 4 AND 5 OF CYCLE 2,4 AND 6
     Route: 042
  24. ARA-C [Suspect]
     Indication: BURKITT^S LEUKAEMIA
     Dosage: ON DAYS 4 AND 5 OF CYCLE 2,4 AND 6
     Route: 042
  25. VP-16 [Suspect]
     Indication: BURKITT^S LYMPHOMA
     Dosage: ON DAYS 4 AND 5 OF CYCLE 2,4 AND 6
     Route: 042
  26. VP-16 [Suspect]
     Indication: BURKITT^S LEUKAEMIA
     Dosage: ON DAYS 4 AND 5 OF CYCLE 2,4 AND 6
     Route: 042
  27. DEXAMETHASONE [Suspect]
     Indication: BURKITT^S LYMPHOMA
     Dosage: ON DAYS 1-5 OF CYCLE 2,4 AND 6
     Route: 042
  28. DEXAMETHASONE [Suspect]
     Indication: BURKITT^S LYMPHOMA
     Dosage: ON DAYS 1-5 OF CYCLE 3,5 AND 7
     Route: 042
  29. DEXAMETHASONE [Suspect]
     Indication: BURKITT^S LEUKAEMIA
     Dosage: ON DAYS 1-5 OF CYCLE 2,4 AND 6
     Route: 042
  30. DEXAMETHASONE [Suspect]
     Indication: BURKITT^S LEUKAEMIA
     Dosage: ON DAYS 1-5 OF CYCLE 3,5 AND 7
     Route: 042
  31. RITUXIMAB [Suspect]
     Indication: BURKITT^S LYMPHOMA
     Dosage: ON DAY 8 FROM CYCLE 3 TO 7
     Route: 042
  32. RITUXIMAB [Suspect]
     Indication: BURKITT^S LYMPHOMA
     Dosage: DAY 8 ON CYCLE 2; DOAGE INCREASED TO 375 MG/M2 ON DAY 10 AND 12
     Route: 042
  33. RITUXIMAB [Suspect]
     Indication: BURKITT^S LEUKAEMIA
     Dosage: DAY 8 ON CYCLE 2; DOAGE INCREASED TO 375 MG/M2 ON DAY 10 AND 12
     Route: 042
  34. RITUXIMAB [Suspect]
     Indication: BURKITT^S LEUKAEMIA
     Dosage: ON DAY 8 FROM CYCLE 3 TO 7
     Route: 042
  35. ALLOPURINOL [Suspect]
     Indication: BURKITT^S LYMPHOMA
     Dosage: 1-14 DAYS IN CYCLE 1
     Route: 048
  36. ALLOPURINOL [Suspect]
     Indication: BURKITT^S LEUKAEMIA
     Dosage: 1-14 DAYS IN CYCLE 1
     Route: 048
  37. HYDROCORTISONE [Suspect]
     Indication: BURKITT^S LYMPHOMA
     Route: 037
  38. HYDROCORTISONE [Suspect]
     Indication: BURKITT^S LYMPHOMA
     Route: 037
  39. LEUCOVORIN [Suspect]
     Indication: PROPHYLAXIS
     Dosage: 50 MG/M2 36 HOURS AFTER INITIATION OF METHOTREXATE, 2 DAYS, CYCLE LENGTH 21 DAYS
     Route: 042
  40. LEUCOVORIN [Suspect]
     Indication: PROPHYLAXIS
     Dosage: 25 MG/M2 36 HOURS AFTER INITIATION OF METHOTREXATE, 2 DAYS, CYCLE LENGTH 21 DAYS
     Route: 042
  41. LEUCOVORIN [Suspect]
     Indication: PROPHYLAXIS
     Dosage: EVERY 6 HOURS UNTIL LEVEL {0.05 LMOL/L, 1 DAY, CYCLE LENGTH 21 DAYS
     Route: 042
  42. LEUCOVORIN [Suspect]
     Indication: PROPHYLAXIS
     Dosage: EVERY 6 HOURS UNTIL LEVEL {0.05 LMOL/L, 1 DAY, CYCLE LENGTH 21 DAYS
     Route: 042
  43. CYTARABINE [Suspect]
     Indication: BURKITT^S LYMPHOMA
     Route: 037
  44. CYTARABINE [Suspect]
     Indication: BURKITT^S LEUKAEMIA
     Route: 037
  45. MESNA [Suspect]
     Indication: BURKITT^S LYMPHOMA
     Route: 065
  46. MESNA [Suspect]
     Indication: BURKITT^S LEUKAEMIA
     Route: 065
  47. FILGRASTIM [Suspect]
     Indication: PROPHYLAXIS
     Dosage: 5 MICROGRAM/KG/DAY FROM DAY 7 OF EACH CYCLE UNTIL THE ABSOLUTE NEUTROPHIL COUNT HAD RECOVERED
     Route: 058
  48. FILGRASTIM [Suspect]
     Indication: PROPHYLAXIS
     Route: 058
  49. FILGRASTIM [Suspect]
     Indication: PROPHYLAXIS
     Dosage: 5 MICROGRAM/KG/DAY FROM DAY 7 OF EACH CYCLE UNTIL THE ABSOLUTE NEUTROPHIL COUNT HAD RECOVERED
     Route: 058
  50. FILGRASTIM [Suspect]
     Indication: PROPHYLAXIS
     Route: 058
  51. METHOTREXATE [Suspect]
     Indication: BURKITT^S LYMPHOMA
     Route: 037
  52. METHOTREXATE [Suspect]
     Indication: BURKITT^S LYMPHOMA
     Dosage: IN PATIENTS WITH CENTRAL NERVOUS SYSTEM DISEASE
     Route: 037
  53. METHOTREXATE [Suspect]
     Indication: BURKITT^S LEUKAEMIA
     Dosage: IN PATIENTS WITH CENTRAL NERVOUS SYSTEM DISEASE
     Route: 037
  54. METHOTREXATE [Suspect]
     Indication: BURKITT^S LEUKAEMIA
     Route: 037

REACTIONS (36)
  - Burkitt^s lymphoma [Fatal]
  - Respiratory failure [Fatal]
  - Infection [Fatal]
  - Death [Fatal]
  - Renal failure [Unknown]
  - Cardiotoxicity [Unknown]
  - Peripheral motor neuropathy [Unknown]
  - Neutropenia [Unknown]
  - Neurological symptom [Unknown]
  - Central nervous system haemorrhage [Unknown]
  - Gastrointestinal toxicity [Unknown]
  - Tumour lysis syndrome [Unknown]
  - Pulmonary haemorrhage [Unknown]
  - Haematotoxicity [Unknown]
  - Vomiting [Unknown]
  - Stomatitis [Unknown]
  - Nausea [Unknown]
  - Fatigue [Unknown]
  - Rash [Unknown]
  - Erythema multiforme [Unknown]
  - Diarrhoea [Unknown]
  - Dyspnoea [Unknown]
  - Condition aggravated [Unknown]
  - Pneumonitis [Unknown]
  - Febrile neutropenia [Unknown]
  - Peripheral sensory neuropathy [Unknown]
  - Confusional state [Unknown]
  - Convulsion [Unknown]
  - Hepatobiliary disease [Unknown]
  - Pulmonary toxicity [Unknown]
  - Haemorrhage [Unknown]
  - Toxicity to various agents [Unknown]
  - Skin toxicity [Unknown]
  - Central nervous system lymphoma [Unknown]
  - Abnormal behaviour [Unknown]
  - Affective disorder [Unknown]
